FAERS Safety Report 6133869-3 (Version None)
Quarter: 2009Q1

REPORT INFORMATION
  Report Type: 
  Country: None (occurrence: None)
  Receive Date: 20090326
  Receipt Date: 20090321
  Transmission Date: 20090719
  Serious: Yes (Hospitalization)
  Sender: FDA-Public Use
  Company Number: US-PFIZER INC-2008092028

PATIENT
  Sex: Female
  Weight: 92.154 kg

DRUGS (15)
  1. NAPROXEN [Suspect]
     Indication: OSTEOARTHRITIS
     Dosage: UNK
     Route: 048
     Dates: start: 20080608
  2. BLINDED *PLACEBO [Suspect]
     Indication: OSTEOARTHRITIS
     Dosage: UNK
     Route: 048
     Dates: start: 20080608
  3. BLINDED CELECOXIB [Suspect]
     Indication: OSTEOARTHRITIS
     Dosage: UNK
     Route: 048
     Dates: start: 20080608
  4. IBUPROFEN TABLETS [Suspect]
     Indication: OSTEOARTHRITIS
     Dosage: UNK
     Route: 048
     Dates: start: 20080608
  5. NAPROXEN [Suspect]
     Dosage: UNK
     Route: 048
     Dates: start: 20080608
  6. NAPROXEN [Suspect]
     Indication: RHEUMATOID ARTHRITIS
  7. BLINDED *PLACEBO [Suspect]
     Indication: RHEUMATOID ARTHRITIS
  8. BLINDED CELECOXIB [Suspect]
     Indication: RHEUMATOID ARTHRITIS
  9. IBUPROFEN TABLETS [Suspect]
     Indication: RHEUMATOID ARTHRITIS
  10. NAPROXEN [Suspect]
  11. NEXIUM [Concomitant]
     Dosage: 20 MG, 1X/DAY, DAILY
     Route: 048
     Dates: start: 20080608
  12. ATENOLOL [Concomitant]
     Dosage: 150 MG, UNK
     Route: 048
     Dates: start: 19990101
  13. GLYBURIDE [Concomitant]
     Route: 048
     Dates: start: 20020101
  14. NORVASC [Concomitant]
     Dosage: 10 MG, UNK
     Route: 048
     Dates: start: 20020101
  15. ACETYLSALICYLIC ACID [Concomitant]
     Dosage: 81 MG, UNK
     Route: 048

REACTIONS (5)
  - COLITIS ISCHAEMIC [None]
  - DIARRHOEA [None]
  - HYPOGLYCAEMIA [None]
  - KNEE ARTHROPLASTY [None]
  - OEDEMA PERIPHERAL [None]
